FAERS Safety Report 9746407 (Version 1)
Quarter: 2013Q4

REPORT INFORMATION
  Report Type: Spontaneous
  Country: AU (occurrence: None)
  Receive Date: 20131205
  Receipt Date: 20131205
  Transmission Date: 20140711
  Serious: Yes (Hospitalization, Other)
  Sender: FDA-Public Use
  Company Number: AU-DESITIN-2013-00085

PATIENT
  Age: 69 Year
  Sex: Female

DRUGS (3)
  1. CARBAMAZEPIN [Suspect]
     Indication: EPILEPSY
  2. LEVETIRACETAM [Suspect]
     Indication: EPILEPSY
     Dosage: 500 MG MILLGRAM(S), 2 IN 1 DAYS
  3. VALPROIC ACID [Suspect]
     Indication: EPILEPSY

REACTIONS (5)
  - Rash erythematous [None]
  - Tubulointerstitial nephritis [None]
  - Delirium [None]
  - Stomatitis [None]
  - Oral herpes [None]
